FAERS Safety Report 14130944 (Version 3)
Quarter: 2017Q4

REPORT INFORMATION
  Report Type: Spontaneous
  Country: US (occurrence: US)
  Receive Date: 20171026
  Receipt Date: 20171108
  Transmission Date: 20180321
  Serious: Yes (Hospitalization)
  Sender: FDA-Public Use
  Company Number: US-JNJFOC-20171027056

PATIENT
  Age: 66 Year
  Sex: Female
  Weight: 83.01 kg

DRUGS (13)
  1. XARELTO [Suspect]
     Active Substance: RIVAROXABAN
     Indication: CEREBROVASCULAR ACCIDENT PROPHYLAXIS
     Route: 048
     Dates: start: 2017
  2. XARELTO [Suspect]
     Active Substance: RIVAROXABAN
     Indication: ATRIAL FIBRILLATION
     Route: 048
     Dates: start: 2017
  3. XARELTO [Suspect]
     Active Substance: RIVAROXABAN
     Indication: CELLULITIS
     Route: 048
     Dates: start: 2017
  4. XARELTO [Suspect]
     Active Substance: RIVAROXABAN
     Indication: CELLULITIS
     Route: 048
     Dates: start: 201707, end: 20170809
  5. XARELTO [Suspect]
     Active Substance: RIVAROXABAN
     Indication: CEREBROVASCULAR ACCIDENT PROPHYLAXIS
     Route: 048
     Dates: start: 201707, end: 20170809
  6. DUONEB [Concomitant]
     Active Substance: ALBUTEROL SULFATE\IPRATROPIUM BROMIDE
     Route: 065
  7. BABY ASPIRIN [Concomitant]
     Active Substance: ASPIRIN
     Route: 065
  8. XARELTO [Suspect]
     Active Substance: RIVAROXABAN
     Indication: ATRIAL FIBRILLATION
     Route: 048
     Dates: start: 201707, end: 20170809
  9. ADVAIR HFA [Concomitant]
     Active Substance: FLUTICASONE PROPIONATE\SALMETEROL XINAFOATE
     Route: 065
  10. LASIX [Concomitant]
     Active Substance: FUROSEMIDE
     Route: 065
  11. POTASSIUM [Concomitant]
     Active Substance: POTASSIUM
     Indication: PRODUCT USED FOR UNKNOWN INDICATION
     Route: 065
  12. METOPROLOL. [Concomitant]
     Active Substance: METOPROLOL
     Route: 065
  13. COLACE [Concomitant]
     Active Substance: DOCUSATE SODIUM
     Route: 065

REACTIONS (5)
  - Sepsis [Unknown]
  - Tumour haemorrhage [Unknown]
  - Pulmonary thrombosis [Unknown]
  - Thrombosis [Recovered/Resolved]
  - Circulatory collapse [Unknown]

NARRATIVE: CASE EVENT DATE: 201707
